FAERS Safety Report 8386538-3 (Version None)
Quarter: 2012Q2

REPORT INFORMATION
  Report Type: 
  Country: None (occurrence: None)
  Receive Date: 20120525
  Receipt Date: 20110602
  Transmission Date: 20120825
  Serious: No
  Sender: FDA-Public Use
  Company Number: US-GLAXOSMITHKLINE-A0930066A

PATIENT
  Age: 75 Year
  Sex: Male

DRUGS (5)
  1. UNKNOWN MEDICATION [Concomitant]
  2. VITAMIN D [Concomitant]
  3. ASTEPRO [Concomitant]
  4. LIPITOR [Concomitant]
  5. VERAMYST [Suspect]
     Indication: NASAL POLYPS
     Dosage: 1SPR TWICE PER DAY
     Route: 045
     Dates: start: 20110524

REACTIONS (1)
  - HEADACHE [None]
